FAERS Safety Report 15186541 (Version 1)
Quarter: 2018Q3

REPORT INFORMATION
  Report Type: Report from Study
  Country: US (occurrence: US)
  Receive Date: 20180723
  Receipt Date: 20180723
  Transmission Date: 20181010
  Serious: No
  Sender: FDA-Public Use
  Company Number: US-EXELIXIS-CABO-18012196

PATIENT
  Age: 51 Year
  Sex: Male

DRUGS (11)
  1. ASPIR 81 [Concomitant]
  2. METOPROLOL. [Concomitant]
     Active Substance: METOPROLOL
  3. ATORVASTATIN CALCIUM. [Concomitant]
     Active Substance: ATORVASTATIN CALCIUM
  4. VITAMIN B COMPLEX [Concomitant]
     Active Substance: CYANOCOBALAMIN\DEXPANTHENOL\NIACINAMIDE\PYRIDOXINE HYDROCHLORIDE\RIBOFLAVIN 5^-PHOSPHATE SODIUM\THIAMINE HYDROCHLORIDE\VITAMIN B COMPLEX
  5. AMLODIPINE [Concomitant]
     Active Substance: AMLODIPINE BESYLATE
  6. RAMIPRIL. [Concomitant]
     Active Substance: RAMIPRIL
  7. CABOMETYX [Suspect]
     Active Substance: CABOZANTINIB S-MALATE
     Indication: RENAL CANCER
     Dosage: 60 MG, QD
     Route: 048
     Dates: start: 20180113
  8. PROBIOTIC [Concomitant]
     Active Substance: PROBIOTICS NOS
  9. CHLORTHALID [Concomitant]
  10. VITAMIN D3 [Concomitant]
     Active Substance: CHOLECALCIFEROL
  11. ZOFRAN [Concomitant]
     Active Substance: ONDANSETRON HYDROCHLORIDE

REACTIONS (4)
  - Constipation [Unknown]
  - Nasopharyngitis [Unknown]
  - Diarrhoea [Unknown]
  - Dyspepsia [Unknown]

NARRATIVE: CASE EVENT DATE: 201801
